FAERS Safety Report 18902474 (Version 1)
Quarter: 2021Q1

REPORT INFORMATION
  Report Type: Spontaneous
  Country: US (occurrence: US)
  Receive Date: 20210217
  Receipt Date: 20210217
  Transmission Date: 20210420
  Serious: Yes (Other)
  Sender: FDA-Public Use
  Company Number: US-NOVEN PHARMACEUTICALS, INC.-2020US009263

PATIENT
  Age: 23 Year
  Sex: Male
  Weight: 101.59 kg

DRUGS (3)
  1. DAYTRANA [Suspect]
     Active Substance: METHYLPHENIDATE
     Dosage: 20 MG/9 HOUR
     Route: 062
     Dates: start: 20200605
  2. INSULIN [Concomitant]
     Active Substance: INSULIN NOS
     Indication: PRODUCT USED FOR UNKNOWN INDICATION
     Dosage: UNK
     Route: 065
  3. DAYTRANA [Suspect]
     Active Substance: METHYLPHENIDATE
     Indication: ATTENTION DEFICIT HYPERACTIVITY DISORDER
     Dosage: 20 MG (1 TRANSDERMAL PATCH MONDAY?FRIDAY)
     Route: 062
     Dates: start: 20200605

REACTIONS (10)
  - Product quality issue [Not Recovered/Not Resolved]
  - Drug screen positive [Unknown]
  - Anxiety [Recovered/Resolved]
  - Nervousness [Recovered/Resolved]
  - Therapeutic product effect incomplete [Unknown]
  - Product adhesion issue [Not Recovered/Not Resolved]
  - Nausea [Recovered/Resolved]
  - Decreased appetite [Recovered/Resolved]
  - Off label use [Not Recovered/Not Resolved]
  - Therapeutic product ineffective [Unknown]

NARRATIVE: CASE EVENT DATE: 2020
